FAERS Safety Report 9778314 (Version 1)
Quarter: 2013Q4

REPORT INFORMATION
  Report Type: Spontaneous
  Country: US (occurrence: US)
  Receive Date: 20131223
  Receipt Date: 20131223
  Transmission Date: 20140711
  Serious: Yes (Hospitalization, Other)
  Sender: FDA-Public Use
  Company Number: 2012SP001160

PATIENT
  Age: 21 Year
  Sex: Female

DRUGS (8)
  1. ALLOPURINOL [Suspect]
     Indication: BLOOD URIC ACID INCREASED
  2. MELOXICAM [Suspect]
     Indication: PRODUCT USED FOR UNKNOWN INDICATION
  3. CIPROFLOXACIN [Suspect]
     Indication: URINARY TRACT INFECTION
  4. AMOXICILLIN [Concomitant]
  5. CLAVULANIC ACID [Concomitant]
  6. DIPHENHYDRAMINE [Concomitant]
     Indication: PRURITUS
     Route: 061
  7. TOBRAMYCIN [Concomitant]
     Route: 047
  8. MICONAZOLE [Concomitant]
     Indication: VULVOVAGINAL MYCOTIC INFECTION

REACTIONS (1)
  - Toxic epidermal necrolysis [Recovering/Resolving]
